FAERS Safety Report 18776365 (Version 1)
Quarter: 2021Q1

REPORT INFORMATION
  Report Type: Other
  Country: TN (occurrence: TN)
  Receive Date: 20210123
  Receipt Date: 20210123
  Transmission Date: 20210419
  Serious: Yes (Other)
  Sender: FDA-Public Use
  Company Number: TN-FDC LIMITED-2105741

PATIENT
  Age: 48 Year
  Sex: Male

DRUGS (2)
  1. CIPROFLOXACIN. [Suspect]
     Active Substance: CIPROFLOXACIN
     Indication: ENTEROBACTER INFECTION
     Route: 042
  2. IMIPENEME [Suspect]
     Active Substance: IMIPENEM
     Route: 042

REACTIONS (1)
  - Generalised tonic-clonic seizure [Unknown]
